FAERS Safety Report 8354920-6 (Version None)
Quarter: 2012Q2

REPORT INFORMATION
  Report Type: 
  Country: None (occurrence: None)
  Receive Date: 20120511
  Receipt Date: 20120509
  Transmission Date: 20120825
  Serious: Yes (Hospitalization, Other)
  Sender: FDA-Public Use
  Company Number: JP-PFIZER INC-2012091786

PATIENT
  Age: 53 Year
  Sex: Female
  Weight: 47.5 kg

DRUGS (10)
  1. LYRICA [Suspect]
     Indication: HYPOAESTHESIA
     Dosage: 1150 MG/DAY
     Route: 048
     Dates: start: 20120404, end: 20120411
  2. CHLOR-TRIMETON [Concomitant]
     Indication: PROPHYLAXIS
     Dosage: 10 MG, WEEKLY
     Route: 042
     Dates: start: 20120229, end: 20120404
  3. TAXOL [Suspect]
     Indication: BREAST CANCER
     Dosage: 116 MG, WEEKLY
     Route: 042
     Dates: start: 20120229, end: 20120404
  4. GLUCOSE [Concomitant]
     Indication: MEDICATION DILUTION
     Dosage: 250 ML, WEEKLY
     Route: 042
     Dates: start: 20120229, end: 20120404
  5. LAFUTIDINE [Concomitant]
     Indication: PROPHYLAXIS
     Dosage: 10 MG, 2X/DAY
     Route: 048
     Dates: start: 20120229, end: 20120412
  6. FERROUS CITRATE [Concomitant]
     Indication: PROPHYLAXIS
     Dosage: 50 MG, 2X/DAY
     Route: 048
     Dates: start: 20120229, end: 20120412
  7. DECADRON [Concomitant]
     Indication: PROPHYLAXIS
     Dosage: 0.5 MG TWICE ONLY ON THE DAY AND THE NEXT DAY OF PACLITAXEL ADMINISTRATION
     Route: 048
     Dates: start: 20120229, end: 20120404
  8. SODIUM CHLORIDE [Concomitant]
     Indication: FLUID REPLACEMENT
     Dosage: 50 ML TWICE DAILY/WEEK
     Route: 042
     Dates: start: 20120229, end: 20120404
  9. GRANISETRON [Concomitant]
     Indication: PROPHYLAXIS
     Dosage: 3 MG, WEEKLY
     Route: 042
     Dates: start: 20120229, end: 20120404
  10. ZANTAC [Concomitant]
     Indication: PROPHYLAXIS
     Dosage: 50 MG, WEEKLY
     Route: 042
     Dates: start: 20120229, end: 20120404

REACTIONS (2)
  - PYREXIA [None]
  - INTERSTITIAL LUNG DISEASE [None]
